FAERS Safety Report 17665967 (Version 1)
Quarter: 2020Q2

REPORT INFORMATION
  Report Type: Spontaneous
  Country: US (occurrence: US)
  Receive Date: 20200414
  Receipt Date: 20200414
  Transmission Date: 20200713
  Serious: Yes (Death)
  Sender: FDA-Public Use
  Company Number: None

PATIENT
  Age: 68 Year
  Sex: Male

DRUGS (3)
  1. PREDNISONE 5MG DAILY [Concomitant]
     Dates: start: 20140206, end: 20200405
  2. MYCOPHENOLATE [Suspect]
     Active Substance: MYCOPHENOLIC ACID
     Indication: RENAL TRANSPLANT
     Route: 048
     Dates: start: 20130517, end: 20200405
  3. TACROLIMUS. [Suspect]
     Active Substance: TACROLIMUS
     Indication: RENAL TRANSPLANT
     Dosage: ?          OTHER FREQUENCY:IN AM, 1 CAP PM;?
     Route: 048
     Dates: start: 20140328, end: 20200405

REACTIONS (1)
  - Death [None]

NARRATIVE: CASE EVENT DATE: 20200405
